FAERS Safety Report 6385870-2 (Version None)
Quarter: 2009Q4

REPORT INFORMATION
  Report Type: 
  Country: None (occurrence: None)
  Receive Date: 20091002
  Receipt Date: 20090922
  Transmission Date: 20100525
  Serious: Yes (Life-Threatening, Hospitalization, Other)
  Sender: FDA-Public Use
  Company Number: RU-AMGEN-UK365758

PATIENT
  Sex: Male

DRUGS (3)
  1. ARANESP [Suspect]
     Indication: ANAEMIA
     Route: 065
  2. RECORMON [Suspect]
     Route: 058
     Dates: start: 20080213
  3. VENOFER [Concomitant]
     Route: 065
     Dates: start: 20080213

REACTIONS (7)
  - ACUTE MYOCARDIAL INFARCTION [None]
  - ANAEMIA [None]
  - DRUG INEFFECTIVE [None]
  - HEPATOMEGALY [None]
  - HYPERTENSIVE CRISIS [None]
  - PNEUMONIA [None]
  - PULMONARY OEDEMA [None]
